FAERS Safety Report 24024377 (Version 1)
Quarter: 2024Q2

REPORT INFORMATION
  Report Type: Spontaneous
  Country: US (occurrence: US)
  Receive Date: 20240628
  Receipt Date: 20240628
  Transmission Date: 20240716
  Serious: No
  Sender: FDA-Public Use
  Company Number: US-ROCHE-3494780

PATIENT
  Sex: Male

DRUGS (1)
  1. ALECENSA [Suspect]
     Active Substance: ALECTINIB HYDROCHLORIDE
     Indication: Ill-defined disorder
     Route: 048

REACTIONS (4)
  - Muscle fatigue [Unknown]
  - Arthralgia [Unknown]
  - International normalised ratio increased [Unknown]
  - Off label use [Unknown]
